FAERS Safety Report 5483780-6 (Version None)
Quarter: 2007Q4

REPORT INFORMATION
  Report Type: 
  Country: None (occurrence: None)
  Receive Date: 20071012
  Receipt Date: 20071002
  Transmission Date: 20080405
  Serious: Yes (Hospitalization)
  Sender: FDA-Public Use
  Company Number: B0467272A

PATIENT
  Age: 63 Year
  Sex: Female
  Weight: 41 kg

DRUGS (3)
  1. LAPATINIB [Suspect]
     Dosage: 1250MG PER DAY
     Route: 048
     Dates: start: 20070329
  2. CAPECITABINE [Suspect]
     Dosage: 2750MG PER DAY
     Route: 048
     Dates: start: 20070329
  3. VALORON [Concomitant]
     Indication: PAIN
     Dosage: 150MG TWICE PER DAY
     Route: 048

REACTIONS (1)
  - BLOOD GLUCOSE INCREASED [None]
